FAERS Safety Report 16229310 (Version 3)
Quarter: 2019Q2

REPORT INFORMATION
  Report Type: Report from Study
  Country: US (occurrence: US)
  Receive Date: 20190423
  Receipt Date: 20190510
  Transmission Date: 20190711
  Serious: Yes (Other)
  Sender: FDA-Public Use
  Company Number: US-ARIAD-2017US007585

PATIENT
  Age: 50 Year
  Sex: Male

DRUGS (1)
  1. PONATINIB [Suspect]
     Active Substance: PONATINIB
     Indication: ACUTE LYMPHOCYTIC LEUKAEMIA
     Dosage: 45 MILLIGRAM, QD
     Route: 048
     Dates: start: 20170105

REACTIONS (14)
  - Mental disorder [Unknown]
  - Flank pain [Unknown]
  - Nausea [Not Recovered/Not Resolved]
  - Blood alkaline phosphatase increased [Unknown]
  - Product dose omission [Unknown]
  - Feeling cold [Not Recovered/Not Resolved]
  - Platelet count decreased [Unknown]
  - Neoplasm progression [Unknown]
  - Abdominal pain [Unknown]
  - Urinary hesitation [Unknown]
  - Malaise [Not Recovered/Not Resolved]
  - Musculoskeletal chest pain [Unknown]
  - Muscle spasms [Unknown]
  - Arthralgia [Unknown]

NARRATIVE: CASE EVENT DATE: 20170111
